FAERS Safety Report 9142693 (Version 1)
Quarter: 2013Q1

REPORT INFORMATION
  Report Type: Spontaneous
  Country: US (occurrence: US)
  Receive Date: 20130306
  Receipt Date: 20130306
  Transmission Date: 20140127
  Serious: No
  Sender: FDA-Public Use
  Company Number: US-ENDO PHARMACEUTICALS INC.-OPER20110144

PATIENT
  Sex: Female

DRUGS (3)
  1. OPANA ER [Suspect]
     Indication: PAIN IN EXTREMITY
     Route: 048
  2. OPANA [Suspect]
     Indication: BREAKTHROUGH PAIN
     Route: 048
  3. LYSTEDA [Suspect]
     Indication: PAIN
     Dosage: UNKNOWN
     Route: 065

REACTIONS (3)
  - Drug interaction [Unknown]
  - Menstrual disorder [Not Recovered/Not Resolved]
  - Drug ineffective [Unknown]
